FAERS Safety Report 6939850-6 (Version None)
Quarter: 2010Q3

REPORT INFORMATION
  Report Type: 
  Country: None (occurrence: None)
  Receive Date: 20100825
  Receipt Date: 20100820
  Transmission Date: 20110219
  Serious: Yes (Death, Hospitalization, Other)
  Sender: FDA-Public Use
  Company Number: JP-JNJFOC-20100807628

PATIENT
  Age: 86 Year
  Sex: Female

DRUGS (5)
  1. LEVOFLOXACIN [Suspect]
     Indication: PYELONEPHRITIS
     Dosage: 3 DAY REGIMEN
     Route: 048
  2. AMARYL [Suspect]
     Indication: PRODUCT USED FOR UNKNOWN INDICATION
     Route: 065
  3. BASEN [Suspect]
     Indication: PRODUCT USED FOR UNKNOWN INDICATION
     Route: 065
  4. BLOPRESS [Suspect]
     Indication: PRODUCT USED FOR UNKNOWN INDICATION
     Route: 065
  5. BUP-4 [Concomitant]

REACTIONS (4)
  - ALTERED STATE OF CONSCIOUSNESS [None]
  - BLOOD PRESSURE DECREASED [None]
  - HYPOGLYCAEMIA [None]
  - PERIPHERAL ISCHAEMIA [None]
